FAERS Safety Report 18132342 (Version 1)
Quarter: 2020Q3

REPORT INFORMATION
  Report Type: Spontaneous
  Country: US (occurrence: US)
  Receive Date: 20200811
  Receipt Date: 20200811
  Transmission Date: 20201103
  Serious: No
  Sender: FDA-Public Use
  Company Number: US-ALK-ABELLO A/S-2020AA002217

PATIENT

DRUGS (1)
  1. RAGWITEK [Suspect]
     Active Substance: AMBROSIA ARTEMISIIFOLIA POLLEN
     Indication: PRODUCT USED FOR UNKNOWN INDICATION

REACTIONS (2)
  - Product administered to patient of inappropriate age [Unknown]
  - Off label use [Unknown]
